FAERS Safety Report 4559002-7 (Version None)
Quarter: 2005Q1

REPORT INFORMATION
  Report Type: 
  Country: None (occurrence: None)
  Receive Date: 20050124
  Receipt Date: 20040831
  Transmission Date: 20050727
  Serious: Yes (Death, Hospitalization)
  Sender: FDA-Public Use
  Company Number: PHEH2004US09495

PATIENT
  Age: 90 Year
  Sex: Female
  Weight: 61 kg

DRUGS (16)
  1. DILTIAZEM [Concomitant]
  2. LEVOXYL [Concomitant]
  3. PIROXICAM [Concomitant]
  4. ALLEGRA [Concomitant]
  5. DETROL [Concomitant]
  6. SIMVASTATIN [Concomitant]
  7. ACETYLSALICYLIC ACID SRT [Concomitant]
     Dosage: 325 MG, UNK
  8. PRILOSEC [Concomitant]
  9. PROZAC [Concomitant]
  10. TIMOLOL MALEATE [Concomitant]
  11. CYCLOBENZAPRINE [Concomitant]
  12. DIAZEPAM [Concomitant]
  13. NITROGLYCERIN [Concomitant]
     Indication: CHEST PAIN
     Dosage: UNK, PRN
  14. FENTANYL [Concomitant]
  15. MULTI-VITAMINS [Concomitant]
  16. ZELNORM [Suspect]
     Indication: IRRITABLE BOWEL SYNDROME
     Dosage: 6 MG, BID
     Route: 048
     Dates: start: 20040810, end: 20040830

REACTIONS (7)
  - DERMATITIS [None]
  - DRUG HYPERSENSITIVITY [None]
  - HAEMORRHAGIC STROKE [None]
  - HEADACHE [None]
  - NECK PAIN [None]
  - PAIN IN EXTREMITY [None]
  - RASH PRURITIC [None]
